FAERS Safety Report 5376547-0 (Version None)
Quarter: 2007Q2

REPORT INFORMATION
  Report Type: 
  Country: None (occurrence: None)
  Receive Date: 20070629
  Receipt Date: 20070613
  Transmission Date: 20071010
  Serious: Yes (Disabling)
  Sender: FDA-Public Use
  Company Number: 2007001091

PATIENT
  Age: 78 Year
  Sex: Female

DRUGS (4)
  1. TARCEVA [Suspect]
     Indication: NON-SMALL CELL LUNG CANCER
     Dosage: (QD), ORAL
     Route: 048
     Dates: start: 20061124
  2. LEVOTHYROXINE SODIUM [Concomitant]
  3. OXYCONTIN [Concomitant]
  4. SALBUTAMOL (SALBUTAMOL) [Concomitant]

REACTIONS (3)
  - DRUG TOXICITY [None]
  - SKIN TOXICITY [None]
  - VISUAL FIELD DEFECT [None]
